FAERS Safety Report 6381546-6 (Version None)
Quarter: 2009Q3

REPORT INFORMATION
  Report Type: 
  Country: None (occurrence: None)
  Receive Date: 20090925
  Receipt Date: 20090915
  Transmission Date: 20100115
  Serious: Yes (Other)
  Sender: FDA-Public Use
  Company Number: WAES 0909USA02614

PATIENT
  Age: 40 Year
  Sex: Female

DRUGS (1)
  1. SINGULAIR [Suspect]
     Indication: RHINITIS
     Dosage: 10 MG/DAILY PO
     Route: 048
     Dates: start: 20090305, end: 20090528

REACTIONS (1)
  - CONSTIPATION [None]
